FAERS Safety Report 16049907 (Version 1)
Quarter: 2019Q1

REPORT INFORMATION
  Report Type: Spontaneous
  Country: US (occurrence: US)
  Receive Date: 20190308
  Receipt Date: 20190308
  Transmission Date: 20190418
  Serious: Yes (Death, Other)
  Sender: FDA-Public Use
  Company Number: US-009507513-1903USA002033

PATIENT
  Age: 57 Year
  Sex: Female

DRUGS (7)
  1. COZAAR [Suspect]
     Active Substance: LOSARTAN POTASSIUM
     Dosage: ROUTE: INGESTION
     Route: 048
  2. FOLIC ACID. [Suspect]
     Active Substance: FOLIC ACID
     Dosage: ROUTE: INGESTION
     Route: 048
  3. CHOLECALCIFEROL [Suspect]
     Active Substance: CHOLECALCIFEROL
     Dosage: ROUTE: INGESTION
     Route: 048
  4. APIXABAN [Suspect]
     Active Substance: APIXABAN
     Dosage: ROUTE: INGESTION
     Route: 048
  5. DILTIAZEM. [Suspect]
     Active Substance: DILTIAZEM
     Dosage: ROUTE: INGESTION
     Route: 048
  6. SOTALOL. [Suspect]
     Active Substance: SOTALOL
     Dosage: ROUTE: INGESTION
     Route: 048
  7. ETHANOLAMINE OLEATE. [Suspect]
     Active Substance: ETHANOLAMINE OLEATE
     Dosage: ROUTE: INGESTION
     Route: 048

REACTIONS (1)
  - Suspected suicide attempt [Fatal]
